FAERS Safety Report 8157903-4 (Version None)
Quarter: 2012Q1

REPORT INFORMATION
  Report Type: 
  Country: None (occurrence: None)
  Receive Date: 20120222
  Receipt Date: 20120213
  Transmission Date: 20120608
  Serious: Yes (Other)
  Sender: FDA-Public Use
  Company Number: PHFR2004GB04601

PATIENT
  Sex: Male

DRUGS (6)
  1. OXAZEPAM [Concomitant]
     Indication: ANXIETY
     Dosage: 10MG/DAY
     Route: 048
     Dates: start: 20010627
  2. PIRENZEPINE [Concomitant]
     Indication: SALIVARY HYPERSECRETION
     Dosage: 50 MG/DAY
     Route: 048
  3. CLOZARIL [Suspect]
     Dosage: 300 MG/DAY
     Route: 048
  4. LANSOPRAZOLE [Suspect]
     Indication: GASTROOESOPHAGEAL REFLUX DISEASE
     Dosage: 15MG/DAY
     Route: 048
     Dates: start: 20031001
  5. CLOZARIL [Suspect]
     Route: 048
     Dates: start: 20070129
  6. CLOZARIL [Suspect]
     Indication: SCHIZOPHRENIA
     Route: 048
     Dates: start: 19971110

REACTIONS (4)
  - HEPATITIS C VIRUS TEST POSITIVE [None]
  - THROMBOCYTOPENIA [None]
  - CIRRHOSIS ALCOHOLIC [None]
  - RASH [None]
